FAERS Safety Report 23748970 (Version 1)
Quarter: 2024Q2

REPORT INFORMATION
  Report Type: Spontaneous
  Country: US (occurrence: None)
  Receive Date: 20240416
  Receipt Date: 20240416
  Transmission Date: 20240717
  Serious: No
  Sender: FDA-Public Use
  Company Number: None

PATIENT
  Age: 55 Year
  Sex: Female
  Weight: 55.8 kg

DRUGS (10)
  1. SEROQUEL [Suspect]
     Active Substance: QUETIAPINE FUMARATE
     Indication: Bipolar I disorder
     Dosage: OTHER QUANTITY : 1 TABLET(S);?FREQUENCY : AT BEDTIME;?
     Route: 048
     Dates: start: 20020315, end: 20240319
  2. PROGESTERONE MICRO [Concomitant]
  3. CES-ULTRA [Concomitant]
  4. DEN [Concomitant]
  5. COMPLEX AMINO ACID [Concomitant]
  6. MAGNESIUM [Concomitant]
     Active Substance: MAGNESIUM
  7. INOSITOL [Concomitant]
     Active Substance: INOSITOL
  8. GABAMAX [Concomitant]
  9. PASSION FLOWER [Concomitant]
     Active Substance: HERBALS\HOMEOPATHICS\PASSIFLORA INCARNATA FLOWER
  10. ALPHA GPC [Concomitant]

REACTIONS (4)
  - Cough [None]
  - Vomiting [None]
  - Muscle twitching [None]
  - Muscle spasms [None]

NARRATIVE: CASE EVENT DATE: 20150125
